FAERS Safety Report 8099703-X (Version None)
Quarter: 2012Q1

REPORT INFORMATION
  Report Type: 
  Country: None (occurrence: None)
  Receive Date: 20120129
  Receipt Date: 20110906
  Transmission Date: 20120608
  Serious: No
  Sender: FDA-Public Use
  Company Number: US-ABBOTT-11P-163-0852087-00

PATIENT
  Sex: Male

DRUGS (12)
  1. METHOTREXATE [Concomitant]
     Indication: RHEUMATOID ARTHRITIS
  2. METFORMIN HCL [Concomitant]
     Indication: DIABETES MELLITUS
  3. POTASSIUM CHLORIDE [Concomitant]
     Indication: SUPPLEMENTATION THERAPY
  4. LOVASTATIN [Concomitant]
     Indication: HYPERLIPIDAEMIA
  5. HUMIRA [Suspect]
     Indication: PSORIATIC ARTHROPATHY
     Dates: start: 20110101
  6. HUMIRA [Suspect]
     Indication: PSORIASIS
  7. FUROSEMIDE [Concomitant]
     Indication: FLUID RETENTION
  8. FOLIC ACID [Concomitant]
     Indication: VITAMIN SUPPLEMENTATION
  9. UNKNOWN STUDY DRUG [Concomitant]
     Indication: PRODUCT USED FOR UNKNOWN INDICATION
  10. VENTOLIN [Concomitant]
     Indication: EMPHYSEMA
  11. SPIRIVA [Concomitant]
     Indication: EMPHYSEMA
  12. DIVALPROEX SODIUM [Concomitant]
     Indication: DEPRESSION

REACTIONS (2)
  - PSORIASIS [None]
  - ARTHROPATHY [None]
